FAERS Safety Report 9808636 (Version 2)
Quarter: 2014Q1

REPORT INFORMATION
  Report Type: Spontaneous
  Country: CA (occurrence: CA)
  Receive Date: 20140110
  Receipt Date: 20140121
  Transmission Date: 20141002
  Serious: Yes (Hospitalization)
  Sender: FDA-Public Use
  Company Number: CA-PFIZER INC-2014008630

PATIENT
  Age: 83 Year
  Sex: Female

DRUGS (28)
  1. AMLODIPINE BESILATE [Suspect]
     Indication: HYPERTENSION
     Dosage: 2.5 MG, 2X/DAY
  2. METOPROLOL TARTRATE [Suspect]
     Indication: CORONARY ARTERY DISEASE
     Dosage: 25 MG, 2X/DAY
  3. METOPROLOL TARTRATE [Suspect]
     Indication: CORONARY ARTERY BYPASS
  4. RAMIPRIL [Suspect]
     Indication: HYPERTENSION
     Dosage: 5 MG, 1X/DAY
  5. FUROSEMIDE [Suspect]
     Dosage: 40 MG, 1X/DAY, EVERY MORNING
  6. OXAZEPAM [Suspect]
     Indication: ANXIETY
     Dosage: 20 MG, 1X/DAY, AT BEDTIME
  7. ZOPICLONE [Suspect]
     Indication: INSOMNIA
     Dosage: 5 MG, 1X/DAY, AT BEDTIME
  8. NITROGLYCERINE [Suspect]
     Indication: ANGINA PECTORIS
     Dosage: 0.4 MG, 2X/DAY
     Route: 062
  9. ACETAMINOPHEN W/CODEINE [Concomitant]
     Indication: PAIN
     Dosage: 30 MG, 2X/DAY AS NEEDED
  10. CLOPIDOGREL [Concomitant]
     Indication: CORONARY ARTERY DISEASE
     Dosage: 75 MG, 1X/DAY EVERY MORNING
  11. CLOPIDOGREL [Concomitant]
     Indication: CORONARY ARTERY BYPASS
  12. CLOPIDOGREL [Concomitant]
     Indication: CEREBROVASCULAR ACCIDENT
  13. ATORVASTATIN [Concomitant]
     Indication: CORONARY ARTERY DISEASE
     Dosage: 80 MG, 1X/DAY AT BED TIME
  14. ATORVASTATIN [Concomitant]
     Indication: CORONARY ARTERY BYPASS
  15. ATORVASTATIN [Concomitant]
     Indication: CEREBROVASCULAR ACCIDENT
  16. ESCITALOPRAM OXALATE [Concomitant]
     Indication: DEPRESSION
     Dosage: 10 MG, 1X/DAY EVERY MORNING
  17. ESCITALOPRAM OXALATE [Concomitant]
     Indication: ANXIETY
  18. ERGOCALCIFEROL [Concomitant]
     Indication: OSTEOPOROSIS
     Dosage: 1000 IU, DAILY
  19. HYDROXYCHLOROQUINE SULFATE [Concomitant]
     Indication: RHEUMATOID ARTHRITIS
     Dosage: 200 MG, 1X/DAY AT SUPPER
  20. ACETAMINOPHEN [Concomitant]
     Indication: PAIN
     Dosage: 500 MG, 4X/DAY
  21. PANTOPRAZOLE [Concomitant]
     Indication: NAUSEA
     Dosage: 40 MG, 1X/DAY EVERY MORNING
  22. NITROGLYCERINE [Concomitant]
     Indication: ANGINA PECTORIS
     Dosage: 0.4 MG, AS NEEDED (SPRAY)
  23. POLYETHYLENE GLYCOL [Concomitant]
     Indication: EYE LUBRICATION THERAPY
     Dosage: AS NEEDED
     Route: 047
  24. AMITRIPTYLINE [Concomitant]
     Dosage: UNK
     Dates: end: 2011
  25. GABAPENTIN [Concomitant]
     Dosage: UNK
     Dates: end: 2011
  26. IRON [Concomitant]
     Dosage: UNK
  27. ACETYLSALICYLIC ACID [Concomitant]
     Dosage: UNK
  28. VITAMIN C [Concomitant]
     Dosage: UNK

REACTIONS (4)
  - Hypotension [Recovering/Resolving]
  - Dizziness [Recovered/Resolved]
  - Orthostatic hypotension [Unknown]
  - Fall [Recovered/Resolved]
